FAERS Safety Report 14324518 (Version 3)
Quarter: 2019Q1

REPORT INFORMATION
  Report Type: Spontaneous
  Country: ES (occurrence: ES)
  Receive Date: 20171226
  Receipt Date: 20190116
  Transmission Date: 20190417
  Serious: Yes (Other)
  Sender: FDA-Public Use
  Company Number: ES-AUROBINDO-AUR-APL-2017-46596

PATIENT
  Age: 78 Year
  Sex: Male
  Weight: 92 kg

DRUGS (11)
  1. ADIRO [Suspect]
     Active Substance: ASPIRIN
     Indication: CARDIAC DISORDER
     Dosage: UNK
     Route: 048
  2. LANTUS [Suspect]
     Active Substance: INSULIN GLARGINE
     Dosage: 12 INTERNATIONAL UNIT
     Route: 058
  3. MONUROL [Suspect]
     Active Substance: FOSFOMYCIN TROMETHAMINE
     Indication: CALCULUS BLADDER
     Dosage: UNK
     Route: 048
  4. RANITIDINE. [Concomitant]
     Active Substance: RANITIDINE
     Indication: PRODUCT USED FOR UNKNOWN INDICATION
     Dosage: 2 UNK, ONCE A DAY, DOSE: 1-0-1
     Route: 048
  5. ABASAGLAR [Suspect]
     Active Substance: INSULIN GLARGINE
     Indication: PRODUCT USED FOR UNKNOWN INDICATION
     Dosage: 12 INTERNATIONAL UNIT, ONCE A DAY, 12 IU
     Route: 058
     Dates: end: 20171030
  6. SINTROM [Suspect]
     Active Substance: ACENOCOUMAROL
     Indication: CARDIAC DISORDER
     Dosage: UNK
     Route: 048
  7. REPAGLINIDE. [Suspect]
     Active Substance: REPAGLINIDE
     Indication: TYPE 2 DIABETES MELLITUS
     Dosage: 2 UNK, ONCE A DAY, 0-1-1
     Route: 048
  8. LANTUS [Suspect]
     Active Substance: INSULIN GLARGINE
     Indication: TYPE 2 DIABETES MELLITUS
     Dosage: 14 INTERNATIONAL UNIT, ONCE A DAY, 14 IU
     Route: 058
  9. LANTUS [Suspect]
     Active Substance: INSULIN GLARGINE
     Dosage: 11 INTERNATIONAL UNIT, DAILY
     Route: 058
  10. ORFIDAL [Concomitant]
     Active Substance: LORAZEPAM
     Indication: PRODUCT USED FOR UNKNOWN INDICATION
     Dosage: 1 UNK, DAILY
     Route: 048
  11. LANTUS [Suspect]
     Active Substance: INSULIN GLARGINE
     Dosage: 1 UNK, ONCE A DAY
     Route: 051

REACTIONS (32)
  - Malaise [Recovered/Resolved]
  - Erythema [Unknown]
  - Visual impairment [Not Recovered/Not Resolved]
  - Headache [Recovered/Resolved]
  - Insomnia [Unknown]
  - Calculus bladder [Recovering/Resolving]
  - Hyperglycaemia [Recovered/Resolved]
  - Dysgeusia [Recovering/Resolving]
  - Condition aggravated [Recovered/Resolved]
  - Joint swelling [Recovering/Resolving]
  - Gait disturbance [Recovering/Resolving]
  - Decreased appetite [Recovering/Resolving]
  - Renal pain [Recovered/Resolved]
  - Limb discomfort [Recovering/Resolving]
  - Asthenia [Recovered/Resolved]
  - Diarrhoea [Recovered/Resolved]
  - Food aversion [Recovered/Resolved]
  - Testicular disorder [Recovered/Resolved]
  - Restlessness [Recovered/Resolved]
  - Fluid retention [Recovering/Resolving]
  - Pain in extremity [Recovered/Resolved]
  - Bladder disorder [Unknown]
  - Penis injury [Recovering/Resolving]
  - Colitis [Recovered/Resolved]
  - Hypoglycaemia [Recovered/Resolved]
  - Fatigue [Recovering/Resolving]
  - Lung disorder [Unknown]
  - Chest pain [Recovered/Resolved]
  - Anxiety [Recovered/Resolved]
  - Dizziness [Unknown]
  - Blood glucose increased [Unknown]
  - Nausea [Not Recovered/Not Resolved]

NARRATIVE: CASE EVENT DATE: 2016
